FAERS Safety Report 23301663 (Version 1)
Quarter: 2023Q4

REPORT INFORMATION
  Report Type: Spontaneous
  Country: US (occurrence: None)
  Receive Date: 20231214
  Receipt Date: 20231214
  Transmission Date: 20240109
  Serious: No
  Sender: FDA-Public Use
  Company Number: None

PATIENT
  Age: 68 Year
  Sex: Female
  Weight: 110.68 kg

DRUGS (1)
  1. RUXIENCE [Suspect]
     Active Substance: RITUXIMAB-PVVR
     Indication: Hypersensitivity vasculitis
     Dosage: FREQUENCY : WEEKLY;?
     Route: 042
     Dates: start: 202307

REACTIONS (4)
  - Diabetes mellitus [None]
  - Palpitations [None]
  - Dizziness [None]
  - Fall [None]
